FAERS Safety Report 6539706-7 (Version None)
Quarter: 2010Q1

REPORT INFORMATION
  Report Type: 
  Country: None (occurrence: None)
  Receive Date: 20100111
  Receipt Date: 20091229
  Transmission Date: 20100710
  Serious: No
  Sender: FDA-Public Use
  Company Number: 2009003667

PATIENT
  Sex: Female

DRUGS (2)
  1. FENTORA [Suspect]
     Indication: PAIN
     Dosage: BU
     Route: 002
  2. OTFC  (ORAL TRANSMUCOSAL FENTANYL CITRATE)  (GENERIC ACTIQ) [Suspect]
     Indication: PAIN
     Dosage: BU
     Route: 002

REACTIONS (1)
  - DRUG PRESCRIBING ERROR [None]
